FAERS Safety Report 15838513 (Version 1)
Quarter: 2019Q1

REPORT INFORMATION
  Report Type: Spontaneous
  Country: US (occurrence: US)
  Receive Date: 20190117
  Receipt Date: 20190117
  Transmission Date: 20190417
  Serious: Yes (Other)
  Sender: FDA-Public Use
  Company Number: US-TEVA-2019-US-997339

PATIENT
  Age: 2 Year
  Sex: Female

DRUGS (1)
  1. PROPOFOL. [Suspect]
     Active Substance: PROPOFOL
     Indication: ANAESTHESIA
     Dosage: INFUSION THROUGH PROGRAMMABLE PUMP; RECEIVED DOSE IN MG/KG/MIN INSTEAD OF MCG/KG/MIN
     Route: 065

REACTIONS (4)
  - Obstructive airways disorder [Recovering/Resolving]
  - Apnoea [Unknown]
  - Device programming error [Unknown]
  - Accidental overdose [Unknown]
